FAERS Safety Report 8274554-1 (Version None)
Quarter: 2012Q2

REPORT INFORMATION
  Report Type: 
  Country: None (occurrence: None)
  Receive Date: 20120411
  Receipt Date: 20120402
  Transmission Date: 20120825
  Serious: No
  Sender: FDA-Public Use
  Company Number: US-BAYER-2012-032737

PATIENT
  Age: 76 Year
  Sex: Female
  Weight: 70.295 kg

DRUGS (5)
  1. ATENOLOL [Concomitant]
  2. ALEVE (CAPLET) [Suspect]
     Dosage: 1 DF, QD
     Route: 048
     Dates: start: 20090101
  3. VITAMIN B-12 [Concomitant]
  4. MULTI-VITAMIN [Concomitant]
  5. ALEVE (CAPLET) [Suspect]
     Dosage: 1 DF, QD
     Route: 048
     Dates: start: 20120101

REACTIONS (1)
  - RESTLESS LEGS SYNDROME [None]
